FAERS Safety Report 17139732 (Version 4)
Quarter: 2020Q2

REPORT INFORMATION
  Report Type: Report from Study
  Country: IT (occurrence: IT)
  Receive Date: 20191211
  Receipt Date: 20200525
  Transmission Date: 20200713
  Serious: Yes (Other)
  Sender: FDA-Public Use
  Company Number: IT-TAKEDA-2019TUS070220

PATIENT
  Age: 74 Year
  Sex: Female
  Weight: 70 kg

DRUGS (2)
  1. VORTIOXETINE. [Suspect]
     Active Substance: VORTIOXETINE
     Indication: MAJOR DEPRESSION
     Dosage: 10 MILLIGRAM, QD
     Route: 048
     Dates: start: 20190614
  2. VORTIOXETINE. [Suspect]
     Active Substance: VORTIOXETINE
     Dosage: 20 MILLIGRAM, QD
     Route: 048
     Dates: start: 20190619

REACTIONS (1)
  - Hypertensive crisis [Recovered/Resolved]

NARRATIVE: CASE EVENT DATE: 201910
